FAERS Safety Report 24860218 (Version 1)
Quarter: 2025Q1

REPORT INFORMATION
  Report Type: Report from Study
  Country: US (occurrence: MA)
  Receive Date: 20250120
  Receipt Date: 20250120
  Transmission Date: 20250408
  Serious: Yes (Hospitalization)
  Sender: ABBVIE
  Company Number: US-ABBVIE-6089131

PATIENT
  Age: 64 Year
  Sex: Male

DRUGS (1)
  1. SKYRIZI [Suspect]
     Active Substance: RISANKIZUMAB-RZAA
     Indication: Colitis ulcerative
     Route: 058
     Dates: start: 20240910

REACTIONS (3)
  - Blood sodium decreased [Recovering/Resolving]
  - Pneumonia [Recovering/Resolving]
  - Protein total decreased [Recovering/Resolving]

NARRATIVE: CASE EVENT DATE: 20250106
